FAERS Safety Report 8044124-9 (Version None)
Quarter: 2012Q1

REPORT INFORMATION
  Report Type: 
  Country: None (occurrence: None)
  Receive Date: 20120113
  Receipt Date: 20120104
  Transmission Date: 20120608
  Serious: Yes (Death, Hospitalization, Other)
  Sender: FDA-Public Use
  Company Number: US-COVIDIEN/TYCO HEALTHCARE/MALLINCKRODT-T201200027

PATIENT
  Age: 31 Year
  Sex: Male

DRUGS (1)
  1. FENTANYL-100 [Suspect]
     Dosage: 100 UG/HR, UNK
     Route: 048

REACTIONS (9)
  - ASPIRATION [None]
  - SUICIDAL IDEATION [None]
  - PANCREATITIS [None]
  - INTENTIONAL DRUG MISUSE [None]
  - VOMITING [None]
  - WRONG TECHNIQUE IN DRUG USAGE PROCESS [None]
  - CEREBRAL ISCHAEMIA [None]
  - CARDIO-RESPIRATORY ARREST [None]
  - ACCIDENTAL OVERDOSE [None]
